FAERS Safety Report 20462931 (Version 1)
Quarter: 2022Q1

REPORT INFORMATION
  Report Type: Report from Study
  Country: FR (occurrence: FR)
  Receive Date: 20220211
  Receipt Date: 20220211
  Transmission Date: 20220423
  Serious: Yes (Other)
  Sender: FDA-Public Use
  Company Number: FR-GILEAD-2022-0569504

PATIENT
  Age: 59 Year
  Sex: Female
  Weight: 92 kg

DRUGS (1)
  1. SACITUZUMAB GOVITECAN [Suspect]
     Active Substance: SACITUZUMAB GOVITECAN
     Indication: Triple negative breast cancer
     Dosage: 6 MG/KG; C1D1
     Route: 042
     Dates: start: 20210701

REACTIONS (1)
  - Haematotoxicity [Unknown]
